FAERS Safety Report 9384176 (Version 3)
Quarter: 2013Q3

REPORT INFORMATION
  Report Type: Spontaneous
  Country: BE (occurrence: BE)
  Receive Date: 20130705
  Receipt Date: 20130726
  Transmission Date: 20140515
  Serious: Yes (Hospitalization)
  Sender: FDA-Public Use
  Company Number: BE-JNJFOC-20130620649

PATIENT
  Age: 73 Year
  Sex: Female

DRUGS (8)
  1. XARELTO [Suspect]
     Indication: CEREBROVASCULAR ACCIDENT PROPHYLAXIS
     Route: 048
     Dates: end: 20130623
  2. XARELTO [Suspect]
     Indication: CEREBROVASCULAR ACCIDENT PROPHYLAXIS
     Route: 048
     Dates: start: 20121019
  3. XARELTO [Suspect]
     Indication: ATRIAL FIBRILLATION
     Route: 048
     Dates: start: 20121019
  4. XARELTO [Suspect]
     Indication: ATRIAL FIBRILLATION
     Route: 048
     Dates: end: 20130623
  5. ZOLPIDEM [Concomitant]
     Route: 065
  6. METFORMINE [Concomitant]
     Route: 065
  7. ALDACTONE [Concomitant]
     Route: 065
  8. PANTOPRAZOLE SODIUM [Concomitant]
     Route: 065

REACTIONS (5)
  - Angiodysplasia [Unknown]
  - Visual field defect [Unknown]
  - Optic ischaemic neuropathy [Unknown]
  - Intestinal haemorrhage [Unknown]
  - Varicose vein [Unknown]
